FAERS Safety Report 4827258-9 (Version None)
Quarter: 2005Q4

REPORT INFORMATION
  Report Type: 
  Country: None (occurrence: None)
  Receive Date: 20051014
  Receipt Date: 20050830
  Transmission Date: 20060501
  Serious: No
  Sender: FDA-Public Use
  Company Number: 2005SP002561

PATIENT
  Age: 65 Year
  Sex: Female
  Weight: 58.9676 kg

DRUGS (1)
  1. LUNESTA [Suspect]
     Dosage: 1 MG; 1X; ORAL
     Route: 048
     Dates: start: 20050803, end: 20050803

REACTIONS (5)
  - AGITATION [None]
  - ANXIETY [None]
  - HALLUCINATION [None]
  - HEART RATE INCREASED [None]
  - MYOCLONUS [None]
